FAERS Safety Report 6052693-3 (Version None)
Quarter: 2009Q1

REPORT INFORMATION
  Report Type: 
  Country: None (occurrence: None)
  Receive Date: 20090121
  Receipt Date: 20090113
  Transmission Date: 20090719
  Serious: Yes (Other)
  Sender: FDA-Public Use
  Company Number: 2008SP025229

PATIENT
  Age: 53 Year
  Sex: Female
  Weight: 105.2345 kg

DRUGS (2)
  1. PEG-INTRON [Suspect]
     Indication: HEPATITIS C
     Dosage: ; SC
     Route: 058
     Dates: start: 20081114
  2. RIBASPHERE [Suspect]
     Indication: HEPATITIS C
     Dates: start: 20081114

REACTIONS (11)
  - ANAEMIA [None]
  - ANOREXIA [None]
  - ASTHENIA [None]
  - CYANOSIS [None]
  - FEELING COLD [None]
  - GASTRIC ULCER [None]
  - NAUSEA [None]
  - NEUTROPENIA [None]
  - VOMITING [None]
  - WEIGHT DECREASED [None]
  - WHITE BLOOD CELL COUNT DECREASED [None]
